FAERS Safety Report 11523855 (Version 1)
Quarter: 2015Q3

REPORT INFORMATION
  Report Type: Spontaneous
  Country: US (occurrence: US)
  Receive Date: 20150918
  Receipt Date: 20150918
  Transmission Date: 20151125
  Serious: No
  Sender: FDA-Public Use
  Company Number: US-ROCHE-700855

PATIENT
  Age: 46 Year
  Sex: Male
  Weight: 90.7 kg

DRUGS (2)
  1. PEGASYS [Suspect]
     Active Substance: PEGINTERFERON ALFA-2A
     Indication: HEPATITIS C
     Route: 058
  2. RIBAVIRIN. [Suspect]
     Active Substance: RIBAVIRIN
     Indication: HEPATITIS C
     Route: 048

REACTIONS (9)
  - White blood cell count decreased [Unknown]
  - Red blood cell count decreased [Unknown]
  - Asthenia [Unknown]
  - Alopecia [Unknown]
  - Headache [Recovered/Resolved]
  - Injection site erythema [Recovered/Resolved]
  - Serum ferritin increased [Not Recovered/Not Resolved]
  - Influenza [Recovered/Resolved]
  - Haemoglobin decreased [Unknown]

NARRATIVE: CASE EVENT DATE: 20100410
